FAERS Safety Report 11628192 (Version 1)
Quarter: 2015Q4

REPORT INFORMATION
  Report Type: Other
  Country: DE (occurrence: DE)
  Receive Date: 20151014
  Receipt Date: 20151014
  Transmission Date: 20160304
  Serious: No
  Sender: FDA-Public Use
  Company Number: DE-LUPIN PHARMACEUTICALS INC.-E2B_00003860

PATIENT
  Age: 21 Year
  Sex: Female
  Weight: 53 kg

DRUGS (1)
  1. DROSPIRENON [Suspect]
     Active Substance: DROSPIRENONE
     Indication: CONTRACEPTION
     Route: 048
     Dates: start: 201401

REACTIONS (5)
  - Performance status decreased [Recovered/Resolved]
  - Polyuria [Recovered/Resolved]
  - Somnolence [Recovered/Resolved]
  - Fatigue [Recovered/Resolved]
  - Polydipsia [Recovered/Resolved]

NARRATIVE: CASE EVENT DATE: 20150215
